FAERS Safety Report 18412930 (Version 1)
Quarter: 2020Q4

REPORT INFORMATION
  Report Type: Spontaneous
  Country: US (occurrence: US)
  Receive Date: 20201022
  Receipt Date: 20201022
  Transmission Date: 20210114
  Serious: Yes (Death, Hospitalization, Other)
  Sender: FDA-Public Use
  Company Number: US-AUROBINDO-AUR-APL-2019-077977

PATIENT
  Age: 23 Month
  Sex: Male
  Weight: 12.5 kg

DRUGS (4)
  1. CARBAMAZEPINE. [Interacting]
     Active Substance: CARBAMAZEPINE
     Dosage: 500 MILLIGRAM, DAILY (FROM 29 DAYS BEFORE ADR ONSET)
     Route: 065
  2. PHENYTOIN. [Interacting]
     Active Substance: PHENYTOIN
     Dosage: 100 MILLIGRAM, DAILY
     Route: 065
  3. PHENYTOIN. [Suspect]
     Active Substance: PHENYTOIN
     Indication: SEIZURE
     Dosage: 125 MILLIGRAM, DAILY
     Route: 065
  4. CARBAMAZEPINE. [Interacting]
     Active Substance: CARBAMAZEPINE
     Indication: SEIZURE
     Dosage: 100 MILLIGRAM, DAILY
     Route: 065

REACTIONS (5)
  - Unresponsive to stimuli [Not Recovered/Not Resolved]
  - Cyanosis [Not Recovered/Not Resolved]
  - Toxicity to various agents [Fatal]
  - Drug interaction [Not Recovered/Not Resolved]
  - Cardiac arrest [Fatal]
